FAERS Safety Report 23793907 (Version 3)
Quarter: 2024Q3

REPORT INFORMATION
  Report Type: Report from Study
  Country: US (occurrence: US)
  Receive Date: 20240429
  Receipt Date: 20240725
  Transmission Date: 20241016
  Serious: No
  Sender: BIOVITRUM
  Company Number: US-BIOVITRUM-2024-US-006175

PATIENT
  Age: 10 Year
  Sex: Female

DRUGS (2)
  1. KINERET [Suspect]
     Active Substance: ANAKINRA
     Indication: Iridocyclitis
     Dosage: DAILY
     Route: 058
     Dates: start: 20240413
  2. KINERET [Suspect]
     Active Substance: ANAKINRA
     Dosage: DAILY
     Route: 058

REACTIONS (8)
  - Off label use [Recovered/Resolved]
  - Injection site pain [Not Recovered/Not Resolved]
  - Crying [Unknown]
  - Screaming [Unknown]
  - Pain [Unknown]
  - Injection site erythema [Unknown]
  - Ocular discomfort [Unknown]
  - Adverse reaction [Unknown]

NARRATIVE: CASE EVENT DATE: 20240413
